FAERS Safety Report 5086174-0 (Version None)
Quarter: 2006Q3

REPORT INFORMATION
  Report Type: 
  Country: None (occurrence: None)
  Receive Date: 20060818
  Receipt Date: 20060807
  Transmission Date: 20061208
  Serious: Yes (Other)
  Sender: FDA-Public Use
  Company Number: 2006097116

PATIENT
  Age: 49 Year
  Sex: Female
  Weight: 59.2 kg

DRUGS (3)
  1. EPIRUBICIN [Suspect]
     Indication: BREAST CANCER
     Dosage: (160 MG, UNKNOWN), INTRAVENOUS
     Route: 042
     Dates: start: 20060621
  2. DEXAMETHASONE TAB [Concomitant]
  3. GRANISETRON (GRANISETRON) [Concomitant]

REACTIONS (2)
  - EYE SWELLING [None]
  - EYELID OEDEMA [None]
